FAERS Safety Report 8123727-7 (Version None)
Quarter: 2012Q1

REPORT INFORMATION
  Report Type: 
  Country: None (occurrence: None)
  Receive Date: 20120208
  Receipt Date: 20120130
  Transmission Date: 20120608
  Serious: Yes (Other)
  Sender: FDA-Public Use
  Company Number: GR-AMGEN-GRCSP2012000033

PATIENT
  Age: 69 Year
  Sex: Female
  Weight: 70 kg

DRUGS (6)
  1. CALCIORAL                          /00207901/ [Concomitant]
  2. LEPUR [Concomitant]
     Dosage: 20 MG, UNK
     Route: 048
  3. CALCIUM [Concomitant]
     Indication: OSTEOPOROSIS
     Dosage: 2000 MG, UNK
  4. PROLIA [Suspect]
     Indication: OSTEOPOROSIS
     Dosage: 60 MG, Q6MO
     Dates: start: 20110412, end: 20111012
  5. ACCURETIC [Concomitant]
     Indication: HYPERTENSION
     Dosage: 20 MG, UNK
     Route: 048
  6. VASTAREL [Concomitant]
     Dosage: UNK
     Route: 048

REACTIONS (5)
  - EXPOSED BONE IN JAW [None]
  - ABSCESS ORAL [None]
  - PAIN [None]
  - TOOTHACHE [None]
  - OSTEONECROSIS OF JAW [None]
